FAERS Safety Report 4333293-X (Version None)
Quarter: 2004Q2

REPORT INFORMATION
  Report Type: 
  Country: None (occurrence: None)
  Receive Date: 20040405
  Receipt Date: 20040323
  Transmission Date: 20050107
  Serious: Yes (Other)
  Sender: FDA-Public Use
  Company Number: 2004019989

PATIENT
  Age: 60 Year
  Sex: Male
  Weight: 81.6475 kg

DRUGS (1)
  1. LISTERINE ANTISEPTIC MOUTHWASH (EUCALYPTOL, MENTHOL, METHYL SALICYLATE [Suspect]
     Dosage: ORAL
     Route: 048

REACTIONS (4)
  - ALCOHOL POISONING [None]
  - DRUG ABUSER [None]
  - FEELING ABNORMAL [None]
  - MEDICATION ERROR [None]
